FAERS Safety Report 6711373-9 (Version None)
Quarter: 2010Q2

REPORT INFORMATION
  Report Type: 
  Country: None (occurrence: None)
  Receive Date: 20100505
  Receipt Date: 20100427
  Transmission Date: 20101027
  Serious: Yes (Hospitalization)
  Sender: FDA-Public Use
  Company Number: JP-PFIZER INC-2010051495

PATIENT
  Age: 63 Year
  Sex: Female
  Weight: 47 kg

DRUGS (3)
  1. ZITHROMAC SR [Suspect]
     Indication: ARTERIOSCLEROSIS
     Dosage: 2G/DAY
     Route: 048
     Dates: start: 20100416, end: 20100416
  2. DALACIN T [Suspect]
     Indication: ARTERIOSCLEROSIS
     Dosage: 1 G, 2X/DAY
     Route: 062
     Dates: start: 20100416, end: 20100419
  3. DALACIN T [Suspect]
     Indication: INFECTION

REACTIONS (3)
  - DIARRHOEA [None]
  - DIZZINESS [None]
  - VOMITING [None]
